FAERS Safety Report 5476786-4 (Version None)
Quarter: 2007Q4

REPORT INFORMATION
  Report Type: 
  Country: None (occurrence: None)
  Receive Date: 20071003
  Receipt Date: 20071003
  Transmission Date: 20080405
  Serious: Yes (Life-Threatening, Hospitalization)
  Sender: FDA-Public Use
  Company Number: None

PATIENT
  Age: 63 Year
  Sex: Female
  Weight: 76.5 kg

DRUGS (5)
  1. ZOLINZA [Suspect]
     Indication: BREAST CANCER METASTATIC
     Dosage: 400 MG DAILY 21 DAYS OF 28 DAYS PO
     Route: 048
     Dates: start: 20061214, end: 20070929
  2. TAMOXIFEN CITRATE [Concomitant]
  3. COMPASINE [Concomitant]
  4. OXICODONE [Concomitant]
  5. ACIPHEX [Concomitant]

REACTIONS (6)
  - ATRIAL FIBRILLATION [None]
  - BACK PAIN [None]
  - DIZZINESS [None]
  - HYPOTENSION [None]
  - PLATELET COUNT DECREASED [None]
  - PULMONARY ARTERY THROMBOSIS [None]
